FAERS Safety Report 5584074-0 (Version None)
Quarter: 2008Q1

REPORT INFORMATION
  Report Type: 
  Country: None (occurrence: None)
  Receive Date: 20080104
  Receipt Date: 20080104
  Transmission Date: 20080703
  Serious: No
  Sender: FDA-Public Use
  Company Number: None

PATIENT
  Sex: Female
  Weight: 70.3075 kg

DRUGS (2)
  1. MAGNEVIST [Suspect]
     Indication: ACOUSTIC NEUROMA
     Dosage: 15 CC VENOUS
     Route: 042
     Dates: start: 20080102
  2. MAGNEVIST [Suspect]
     Indication: DIAGNOSTIC PROCEDURE
     Dosage: 15 CC VENOUS
     Route: 042
     Dates: start: 20080102

REACTIONS (3)
  - NAUSEA [None]
  - RASH ERYTHEMATOUS [None]
  - URTICARIA [None]
